FAERS Safety Report 5354479-1 (Version None)
Quarter: 2007Q2

REPORT INFORMATION
  Report Type: 
  Country: None (occurrence: None)
  Receive Date: 20070612
  Receipt Date: 20070611
  Transmission Date: 20071010
  Serious: Yes (Hospitalization)
  Sender: FDA-Public Use
  Company Number: GB-SANOFI-SYNTHELABO-D01200703700

PATIENT
  Sex: Female

DRUGS (10)
  1. FLUOROURACIL [Suspect]
     Dosage: 400 MG/M?, IV BOLUS D1+D2 FOLLOWED BY 5-FU 2400 MG/M? OVER 46-HOUR CONTINUOUS INFUSION.
     Route: 042
     Dates: start: 20070531, end: 20070601
  2. OXALIPLATIN [Suspect]
     Route: 042
     Dates: start: 20070531, end: 20070531
  3. LACTULOSE [Concomitant]
  4. TRAMADOL HCL [Concomitant]
  5. LORAZEPAM [Concomitant]
  6. LOSARTAN [Concomitant]
  7. ONDANSETRON [Suspect]
  8. DEXAMETHASONE 0.5MG TAB [Concomitant]
  9. LEUCOVORIN CALCIUM [Suspect]
     Route: 042
     Dates: start: 20070601, end: 20070601
  10. SR57746 [Suspect]
     Indication: NEUROLOGICAL SYMPTOM
     Route: 048
     Dates: start: 20070531, end: 20070602

REACTIONS (1)
  - VENTRICULAR TACHYCARDIA [None]
